APPROVED DRUG PRODUCT: FUNGIZONE
Active Ingredient: AMPHOTERICIN B
Strength: 50MG/VIAL
Dosage Form/Route: INJECTABLE;INJECTION
Application: A060517 | Product #001
Applicant: APOTHECON INC DIV BRISTOL MYERS SQUIBB
Approved: Approved Prior to Jan 1, 1982 | RLD: No | RS: No | Type: DISCN